FAERS Safety Report 8032358-9 (Version None)
Quarter: 2011Q4

REPORT INFORMATION
  Report Type: 
  Country: None (occurrence: None)
  Receive Date: 20111201
  Receipt Date: 20110407
  Transmission Date: 20120403
  Serious: Yes (Disabling)
  Sender: FDA-Public Use
  Company Number: 2011SP016069

PATIENT
  Sex: Female

DRUGS (2)
  1. NASACORT [Concomitant]
  2. NASONEX [Suspect]
     Indication: MULTIPLE ALLERGIES
     Dosage: ;INH
     Route: 055

REACTIONS (1)
  - EPISTAXIS [None]
